FAERS Safety Report 20878566 (Version 1)
Quarter: 2022Q2

REPORT INFORMATION
  Report Type: Spontaneous
  Country: US (occurrence: US)
  Receive Date: 20220526
  Receipt Date: 20220526
  Transmission Date: 20220721
  Serious: No
  Sender: FDA-Public Use
  Company Number: US-BRISTOL-MYERS SQUIBB COMPANY-2022-045836

PATIENT
  Age: 51 Year
  Sex: Female

DRUGS (1)
  1. REVLIMID [Suspect]
     Active Substance: LENALIDOMIDE
     Indication: Plasma cell myeloma
     Dosage: FREQUENCY :DAILY ON DAYS 1-14 OF EACH 21-DAY CYCLE. TAKE AT THE SAME TIME EVERY DAY
     Route: 048
     Dates: start: 20220205

REACTIONS (1)
  - Off label use [Unknown]
